FAERS Safety Report 4687733-7 (Version None)
Quarter: 2005Q2

REPORT INFORMATION
  Report Type: 
  Country: None (occurrence: None)
  Receive Date: 20050608
  Receipt Date: 20050608
  Transmission Date: 20051028
  Serious: Yes (Other)
  Sender: FDA-Public Use
  Company Number: None

PATIENT
  Age: 73 Year
  Sex: Male
  Weight: 73 kg

DRUGS (4)
  1. CUBICIN [Suspect]
     Indication: INFECTION
     Dosage: Q 24 HRS IV
     Route: 042
     Dates: start: 20050603
  2. CUBICIN [Suspect]
     Indication: MEDICAL DEVICE COMPLICATION
     Dosage: Q 24 HRS IV
     Route: 042
     Dates: start: 20050603
  3. MAXIPIME [Suspect]
     Indication: INFECTION
     Dosage: Q 12 HRS IV
     Route: 042
     Dates: start: 20050603
  4. MAXIPIME [Suspect]
     Indication: MEDICAL DEVICE COMPLICATION
     Dosage: Q 12 HRS IV
     Route: 042
     Dates: start: 20050603

REACTIONS (1)
  - RASH GENERALISED [None]
